APPROVED DRUG PRODUCT: CAPTOPRIL
Active Ingredient: CAPTOPRIL
Strength: 25MG
Dosage Form/Route: TABLET;ORAL
Application: A074386 | Product #002
Applicant: WATSON LABORATORIES INC
Approved: May 23, 1996 | RLD: No | RS: No | Type: DISCN